FAERS Safety Report 12219485 (Version 1)
Quarter: 2016Q1

REPORT INFORMATION
  Report Type: Spontaneous
  Country: TR (occurrence: TR)
  Receive Date: 20160329
  Receipt Date: 20160329
  Transmission Date: 20160526
  Serious: Yes (Other)
  Sender: FDA-Public Use
  Company Number: TR-VALIDUS PHARMACEUTICALS LLC-TR-2016VAL000538

PATIENT

DRUGS (1)
  1. CARBAMAZEPINE. [Suspect]
     Active Substance: CARBAMAZEPINE
     Indication: EPILEPSY
     Dosage: UNK

REACTIONS (14)
  - Type 2 diabetes mellitus [Not Recovered/Not Resolved]
  - Pleural effusion [Recovered/Resolved]
  - Glycosuria [Unknown]
  - Haematuria [Recovered/Resolved]
  - Breath sounds abnormal [Recovered/Resolved]
  - Hyperglycaemia [Unknown]
  - Blood glucose increased [Unknown]
  - Chest pain [Recovered/Resolved]
  - Pyrexia [Recovered/Resolved]
  - Drug reaction with eosinophilia and systemic symptoms [Recovered/Resolved]
  - Atelectasis [Recovered/Resolved]
  - Rash maculo-papular [Recovered/Resolved]
  - Eosinophilia [Recovered/Resolved]
  - Transaminases increased [Recovered/Resolved]
